FAERS Safety Report 16806193 (Version 1)
Quarter: 2019Q3

REPORT INFORMATION
  Report Type: Spontaneous
  Country: US (occurrence: US)
  Receive Date: 20190913
  Receipt Date: 20190913
  Transmission Date: 20191005
  Serious: Yes (Other)
  Sender: FDA-Public Use
  Company Number: US-TEVA-2019-US-1106607

PATIENT
  Sex: Male

DRUGS (4)
  1. CLOZAPINE. [Suspect]
     Active Substance: CLOZAPINE
     Route: 048
  2. CLOZAPINE. [Suspect]
     Active Substance: CLOZAPINE
     Indication: SCHIZOPHRENIA
     Dosage: 350 MILLIGRAM DAILY; 1 AND HALF TABLET OF 100 MG AND 1 TABLET OF 25 MG TEVA CLOZAPINE TO A DOSE OF 1
     Route: 048
     Dates: start: 201706
  3. ABILIFY [Concomitant]
     Active Substance: ARIPIPRAZOLE
  4. VYVANSE [Concomitant]
     Active Substance: LISDEXAMFETAMINE DIMESYLATE

REACTIONS (16)
  - Eye movement disorder [Not Recovered/Not Resolved]
  - Drooling [Not Recovered/Not Resolved]
  - Grip strength decreased [Not Recovered/Not Resolved]
  - Drug level increased [Unknown]
  - Dysphagia [Unknown]
  - Corneal reflex decreased [Not Recovered/Not Resolved]
  - White blood cell count decreased [Unknown]
  - Granuloma [Unknown]
  - Facial paralysis [Not Recovered/Not Resolved]
  - Urinary incontinence [Not Recovered/Not Resolved]
  - Enuresis [Not Recovered/Not Resolved]
  - Coordination abnormal [Not Recovered/Not Resolved]
  - Abnormal behaviour [Unknown]
  - Cognitive disorder [Unknown]
  - Muscle rigidity [Not Recovered/Not Resolved]
  - Inappropriate affect [Not Recovered/Not Resolved]
